FAERS Safety Report 6676445-6 (Version None)
Quarter: 2010Q2

REPORT INFORMATION
  Report Type: 
  Country: None (occurrence: None)
  Receive Date: 20100412
  Receipt Date: 20100402
  Transmission Date: 20101027
  Serious: Yes (Hospitalization)
  Sender: FDA-Public Use
  Company Number: PHHO2010NL05100

PATIENT
  Sex: Female

DRUGS (3)
  1. CERTICAN [Suspect]
     Indication: LIVER TRANSPLANT
     Dosage: 8 MG
     Route: 048
     Dates: start: 20071210, end: 20080307
  2. PROGRAF [Concomitant]
     Indication: LIVER TRANSPLANT
     Dosage: UNK
     Dates: start: 20080307
  3. CYCLOSPORINE [Concomitant]
     Indication: LIVER TRANSPLANT

REACTIONS (3)
  - DRUG INEFFECTIVE [None]
  - LIVER FUNCTION TEST ABNORMAL [None]
  - TRANSPLANT REJECTION [None]
